FAERS Safety Report 5622325-4 (Version None)
Quarter: 2008Q1

REPORT INFORMATION
  Report Type: 
  Country: None (occurrence: None)
  Receive Date: 20080206
  Receipt Date: 20080125
  Transmission Date: 20080703
  Serious: Yes (Hospitalization)
  Sender: FDA-Public Use
  Company Number: 2007-04333

PATIENT
  Age: 69 Year
  Sex: Male
  Weight: 69 kg

DRUGS (9)
  1. VELCADE [Suspect]
     Indication: MULTIPLE MYELOMA
     Dosage: 2.30 MG, INTRAVENOUS
     Route: 042
     Dates: start: 20070611, end: 20070712
  2. DEXAMETHASONE TAB [Concomitant]
  3. LANSOPRAZOLE [Concomitant]
  4. BAKTAR (SULFAMETHOXAZOLE, TRIMETHOPRIM) [Concomitant]
  5. SELBEX (TEPRENONE) [Concomitant]
  6. PURSENNID (SENNA LEAF) [Concomitant]
  7. MAGNESIUM (DOMPERIDONE) [Concomitant]
  8. CEFEZOLIN SODIUM (CEFAZOLIN SODIUM) [Concomitant]
  9. EXACIN (ISEPAMICIN SULFATE) [Concomitant]

REACTIONS (1)
  - CYTOMEGALOVIRUS INFECTION [None]
